FAERS Safety Report 11428971 (Version 1)
Quarter: 2015Q3

REPORT INFORMATION
  Report Type: Spontaneous
  Country: US (occurrence: None)
  Receive Date: 20150827
  Receipt Date: 20150827
  Transmission Date: 20151125
  Serious: Yes (Other)
  Sender: FDA-Public Use
  Company Number: None

PATIENT
  Age: 69 Year
  Sex: Female
  Weight: 76.4 kg

DRUGS (1)
  1. METHOTREXATE INJECTABLE 25 MG/ML PHARMACEMIE B.V.HAARLEM, FOR TEVA PHARMA [Suspect]
     Active Substance: METHOTREXATE
     Indication: RHEUMATIC DISORDER
     Dosage: 17.5 MG WEEKLY IM
     Route: 030

REACTIONS (6)
  - Polyserositis [None]
  - Pleural effusion [None]
  - Product quality issue [None]
  - Pleurisy [None]
  - Condition aggravated [None]
  - Arthritis [None]

NARRATIVE: CASE EVENT DATE: 20150701
